FAERS Safety Report 15422560 (Version 2)
Quarter: 2018Q4

REPORT INFORMATION
  Report Type: Spontaneous
  Country: PL (occurrence: PL)
  Receive Date: 20180925
  Receipt Date: 20181020
  Transmission Date: 20190204
  Serious: Yes (Death, Other)
  Sender: FDA-Public Use
  Company Number: PL-AUROBINDO-AUR-APL-2018-046818

PATIENT
  Age: 67 Year
  Sex: Female

DRUGS (3)
  1. CHLORPROTHIXENE [Suspect]
     Active Substance: CHLORPROTHIXENE
     Indication: DEPRESSION
     Dosage: UNK
     Route: 065
  2. PRIDINOL [Suspect]
     Active Substance: PRIDINOL
     Indication: SCHIZOPHRENIA
     Dosage: UNK
     Route: 016
  3. SERTRALINE [Suspect]
     Active Substance: SERTRALINE HYDROCHLORIDE
     Indication: DEPRESSION
     Dosage: UNK
     Route: 065

REACTIONS (2)
  - Drowning [Fatal]
  - Death [Fatal]
